FAERS Safety Report 14237117 (Version 1)
Quarter: 2017Q4

REPORT INFORMATION
  Report Type: Report from Study
  Country: DE (occurrence: DE)
  Receive Date: 20171129
  Receipt Date: 20171129
  Transmission Date: 20180321
  Serious: Yes (Other)
  Sender: FDA-Public Use
  Company Number: DE-TEVA-2017-DE-826072

PATIENT
  Age: 51 Year
  Sex: Male
  Weight: 99.1 kg

DRUGS (6)
  1. VALSARTAN. [Concomitant]
     Active Substance: VALSARTAN
     Dates: start: 20160215
  2. LEVETIRACETAM. [Suspect]
     Active Substance: LEVETIRACETAM
     Indication: EPILEPSY
     Dosage: 500 MILLIGRAM DAILY;
     Route: 048
     Dates: start: 2014
  3. ALLOPURINOL. [Concomitant]
     Active Substance: ALLOPURINOL
     Dates: start: 2015
  4. FALITHROM [Concomitant]
     Active Substance: PHENPROCOUMON
     Dates: start: 2013
  5. LERCANIDIPIN [Concomitant]
     Active Substance: LERCANIDIPINE
     Dates: start: 20160303
  6. TOLVAPTAN [Suspect]
     Active Substance: TOLVAPTAN
     Indication: CONGENITAL CYSTIC KIDNEY DISEASE
     Dosage: 90 MILLIGRAM DAILY;
     Dates: start: 20160301, end: 20160303

REACTIONS (1)
  - Blood bilirubin increased [Recovered/Resolved]

NARRATIVE: CASE EVENT DATE: 20160314
